FAERS Safety Report 8859192 (Version 1)
Quarter: 2012Q4

REPORT INFORMATION
  Report Type: Spontaneous
  Country: US (occurrence: None)
  Receive Date: 20121024
  Receipt Date: 20121024
  Transmission Date: 20130627
  Serious: Yes (Hospitalization, Other)
  Sender: FDA-Public Use
  Company Number: None

PATIENT
  Sex: Female
  Weight: 84.37 kg

DRUGS (1)
  1. MIRENA IUD [Suspect]
     Indication: CONTRACEPTION
     Dates: start: 20070826, end: 20090812

REACTIONS (7)
  - Abdominal pain [None]
  - Uterine perforation [None]
  - Scar [None]
  - Ectopic pregnancy [None]
  - Caesarean section [None]
  - Depression [None]
  - Anxiety [None]
